FAERS Safety Report 5704565-9 (Version None)
Quarter: 2008Q2

REPORT INFORMATION
  Report Type: 
  Country: None (occurrence: None)
  Receive Date: 20080411
  Receipt Date: 20080411
  Transmission Date: 20081010
  Serious: Yes (Other)
  Sender: FDA-Public Use
  Company Number: None

PATIENT
  Age: 32 Year
  Sex: Female
  Weight: 97.5234 kg

DRUGS (1)
  1. SINGULAIR [Suspect]
     Indication: MULTIPLE ALLERGIES
     Dosage: ONCE A DAY TABLET  PO
     Route: 048
     Dates: start: 20070515, end: 20070518

REACTIONS (6)
  - ANGER [None]
  - CRYING [None]
  - DEPRESSION [None]
  - FATIGUE [None]
  - NASOPHARYNGITIS [None]
  - THINKING ABNORMAL [None]
